FAERS Safety Report 10161650 (Version 1)
Quarter: 2014Q2

REPORT INFORMATION
  Report Type: Spontaneous
  Country: ES (occurrence: ES)
  Receive Date: 20140509
  Receipt Date: 20140509
  Transmission Date: 20141212
  Serious: Yes (Hospitalization)
  Sender: FDA-Public Use
  Company Number: ES-009507513-1405ESP003555

PATIENT
  Age: 79 Year
  Sex: Female

DRUGS (6)
  1. XELEVIA [Suspect]
     Dosage: UNK
     Route: 048
     Dates: start: 20140301, end: 20140314
  2. MK-9379 [Suspect]
     Dosage: UNK
     Route: 048
     Dates: start: 20140301, end: 20140314
  3. MASDIL [Suspect]
     Dosage: UNK
     Route: 048
     Dates: start: 20140301, end: 20140314
  4. KARVEZIDE [Suspect]
     Dosage: UNK
     Dates: start: 20140301, end: 20140314
  5. DIANBEN [Suspect]
     Dosage: UNK
     Route: 048
     Dates: start: 20140301, end: 20140314
  6. ADIRO [Suspect]
     Dosage: UNK
     Route: 048
     Dates: start: 20140301, end: 20140314

REACTIONS (4)
  - Hyperkalaemia [Recovered/Resolved]
  - Hyponatraemia [Recovered/Resolved]
  - Renal failure [Recovered/Resolved]
  - Renal impairment [Recovered/Resolved]
